FAERS Safety Report 8906019 (Version 1)
Quarter: 2012Q4

REPORT INFORMATION
  Report Type: 
  Country: US (occurrence: US)
  Receive Date: 20121112
  Receipt Date: 20121112
  Transmission Date: 20130627
  Serious: Yes (Other)
  Sender: FDA-Public Use
  Company Number: US-PFIZER INC-2012280691

PATIENT
  Sex: Female

DRUGS (3)
  1. ADVIL [Suspect]
     Indication: HEAD PAIN
     Dosage: 200 mg, 3x/day
     Route: 048
     Dates: start: 20121102, end: 20121108
  2. CAPSIN [Concomitant]
     Dosage: UNK
  3. NORVASC [Concomitant]
     Indication: BLOOD PRESSURE HIGH
     Dosage: 2.5 mg, UNK
     Dates: start: 20120912

REACTIONS (1)
  - Blood pressure increased [Unknown]
